FAERS Safety Report 6880936-2 (Version None)
Quarter: 2010Q2

REPORT INFORMATION
  Report Type: 
  Country: None (occurrence: None)
  Receive Date: 20100630
  Receipt Date: 20100315
  Transmission Date: 20101027
  Serious: No
  Sender: FDA-Public Use
  Company Number: 1000012483

PATIENT
  Age: 69 Year
  Sex: Female

DRUGS (3)
  1. BYSTOLIC [Suspect]
     Indication: HYPERTENSION
     Dosage: 10 MG (10 MG,1 IN 1 D), ORAL
     Route: 048
     Dates: start: 20090601
  2. MOEXIPRIL HYDROCHLORIDE [Concomitant]
  3. CRESTOR [Concomitant]

REACTIONS (2)
  - ALOPECIA [None]
  - BLOOD PRESSURE DECREASED [None]
